FAERS Safety Report 7937500-3 (Version None)
Quarter: 2011Q4

REPORT INFORMATION
  Report Type: 
  Country: None (occurrence: None)
  Receive Date: 20111123
  Receipt Date: 20111114
  Transmission Date: 20120403
  Serious: Yes (Hospitalization, Other)
  Sender: FDA-Public Use
  Company Number: US-ASTRAZENECA-2009UW01089

PATIENT
  Age: 64 Year
  Sex: Female
  Weight: 113.9 kg

DRUGS (6)
  1. SEROQUEL [Suspect]
     Route: 048
     Dates: start: 20060101
  2. LORCETIX [Concomitant]
     Indication: PAIN
  3. SEROQUEL [Suspect]
     Route: 048
     Dates: start: 20060101
  4. SEROQUEL [Suspect]
     Indication: MAJOR DEPRESSION
     Route: 048
     Dates: start: 20020101
  5. PROZAC [Concomitant]
     Indication: DEPRESSION
  6. SEROQUEL [Suspect]
     Indication: PANIC DISORDER
     Route: 048
     Dates: start: 20020101

REACTIONS (8)
  - PANIC ATTACK [None]
  - MAJOR DEPRESSION [None]
  - DRUG DOSE OMISSION [None]
  - ANXIETY [None]
  - GAIT DISTURBANCE [None]
  - DRUG INEFFECTIVE [None]
  - BONE DISORDER [None]
  - PAIN [None]
